FAERS Safety Report 7967446-6 (Version None)
Quarter: 2011Q4

REPORT INFORMATION
  Report Type: 
  Country: None (occurrence: None)
  Receive Date: 20111209
  Receipt Date: 20111201
  Transmission Date: 20120403
  Serious: No
  Sender: FDA-Public Use
  Company Number: IT-JNJFOC-20111201885

PATIENT
  Age: 48 Year
  Sex: Female

DRUGS (4)
  1. MEDROL [Concomitant]
     Indication: PREMEDICATION
     Route: 042
  2. REMICADE [Suspect]
     Indication: ANKYLOSING SPONDYLITIS
     Route: 042
     Dates: start: 20060206
  3. CHLOR-TRIMETON [Concomitant]
     Indication: PREMEDICATION
     Route: 030
  4. ACETAMOL [Concomitant]
     Indication: PREMEDICATION
     Route: 048

REACTIONS (1)
  - CANDIDIASIS [None]
